FAERS Safety Report 16323938 (Version 1)
Quarter: 2019Q2

REPORT INFORMATION
  Report Type: Report from Study
  Country: US (occurrence: US)
  Receive Date: 20190517
  Receipt Date: 20190517
  Transmission Date: 20190711
  Serious: Yes (Hospitalization)
  Sender: FDA-Public Use
  Company Number: US-ROCHE-2314703

PATIENT
  Age: 55 Year
  Sex: Female
  Weight: 71.28 kg

DRUGS (1)
  1. OCREVUS [Suspect]
     Active Substance: OCRELIZUMAB
     Indication: RELAPSING MULTIPLE SCLEROSIS
     Dosage: FULL DOSE EVERY SIX MONTHS
     Route: 042
     Dates: start: 20180401

REACTIONS (6)
  - Influenza [Recovered/Resolved]
  - Blood glucose increased [Unknown]
  - Burning sensation [Unknown]
  - Glucose tolerance impaired [Unknown]
  - Therapy non-responder [Unknown]
  - Paraesthesia [Unknown]

NARRATIVE: CASE EVENT DATE: 20180426
